FAERS Safety Report 25002229 (Version 5)
Quarter: 2025Q3

REPORT INFORMATION
  Report Type: Spontaneous
  Country: US (occurrence: US)
  Receive Date: 20250224
  Receipt Date: 20250918
  Transmission Date: 20251020
  Serious: Yes (Other)
  Sender: SANOFI AVENTIS
  Company Number: US-SA-2025SA054928

PATIENT
  Age: 71 Year
  Sex: Male

DRUGS (3)
  1. KEVZARA [Suspect]
     Active Substance: SARILUMAB
     Indication: Rheumatoid arthritis
     Dosage: 200 MG, QOW
     Route: 058
     Dates: start: 202412, end: 2025
  2. KEVZARA [Suspect]
     Active Substance: SARILUMAB
     Dosage: 200 MG, QOW
     Route: 058
     Dates: start: 2025
  3. METHOTREXATE [Suspect]
     Active Substance: METHOTREXATE
     Route: 065

REACTIONS (7)
  - Rheumatoid arthritis [Recovering/Resolving]
  - Joint swelling [Recovering/Resolving]
  - Condition aggravated [Recovering/Resolving]
  - Arthralgia [Recovering/Resolving]
  - Therapeutic response shortened [Recovering/Resolving]
  - Diarrhoea [Unknown]
  - Surgery [Unknown]

NARRATIVE: CASE EVENT DATE: 20250101
